FAERS Safety Report 18198520 (Version 1)
Quarter: 2020Q3

REPORT INFORMATION
  Report Type: Spontaneous
  Country: KR (occurrence: KR)
  Receive Date: 20200826
  Receipt Date: 20200826
  Transmission Date: 20201103
  Serious: Yes (Other)
  Sender: FDA-Public Use
  Company Number: KR-BECTON DICKINSON-2020BDN00199

PATIENT

DRUGS (1)
  1. CHLORHEXIDINE [Suspect]
     Active Substance: CHLORHEXIDINE
     Indication: ANTIBIOTIC PROPHYLAXIS
     Dosage: ASEPTIC SKIN CLEANING, 1X/DAY
     Route: 061

REACTIONS (1)
  - Staphylococcal infection [Unknown]
